FAERS Safety Report 10267370 (Version 1)
Quarter: 2014Q2

REPORT INFORMATION
  Report Type: Spontaneous
  Country: US (occurrence: None)
  Receive Date: 20140626
  Receipt Date: 20140626
  Transmission Date: 20141212
  Serious: Yes (Disabling)
  Sender: FDA-Public Use
  Company Number: None

PATIENT
  Age: 50 Year
  Sex: Male
  Weight: 113.4 kg

DRUGS (1)
  1. BENICAR 20 MG SANKYO [Suspect]
     Indication: HYPERTENSION
     Dosage: 1 PILL  ONCE DAILY  TAKEN BY MOUTH
     Route: 048

REACTIONS (7)
  - Abdominal discomfort [None]
  - Gastrointestinal pain [None]
  - Flatulence [None]
  - Abdominal distension [None]
  - Diarrhoea [None]
  - Fatigue [None]
  - Gastrointestinal disorder [None]
